FAERS Safety Report 10173387 (Version 1)
Quarter: 2014Q2

REPORT INFORMATION
  Report Type: Spontaneous
  Country: US (occurrence: None)
  Receive Date: 20140415
  Receipt Date: 20140415
  Transmission Date: 20141212
  Serious: Yes (Other)
  Sender: FDA-Public Use
  Company Number: ALL1-2014-01100

PATIENT
  Age: 6 Year
  Sex: Female
  Weight: 26.3 kg

DRUGS (1)
  1. VYVANSE (LISDEXAMFETAMINE DIMESYLATE) CAPSULE [Suspect]
     Indication: ATTENTION DEFICIT/HYPERACTIVITY DISORDER
     Route: 048
     Dates: start: 20131002

REACTIONS (6)
  - Hallucination [None]
  - Hallucinations, mixed [None]
  - Drug prescribing error [None]
  - Decreased appetite [None]
  - Poor quality sleep [None]
  - Mood swings [None]
